FAERS Safety Report 15084682 (Version 1)
Quarter: 2018Q2

REPORT INFORMATION
  Report Type: Spontaneous
  Country: US (occurrence: US)
  Receive Date: 20180628
  Receipt Date: 20180628
  Transmission Date: 20180711
  Serious: Yes (Hospitalization, Congenital Anomaly)
  Sender: FDA-Public Use
  Company Number: US-TEVA-2018-US-913849

PATIENT
  Age: 75 Year
  Sex: Male

DRUGS (2)
  1. GABAPENTIN. [Concomitant]
     Active Substance: GABAPENTIN
     Indication: ARTHRALGIA
     Route: 065
  2. TENOFOVIR [Suspect]
     Active Substance: TENOFOVIR
     Indication: CHRONIC HEPATITIS B
     Route: 065

REACTIONS (5)
  - Osteomalacia [Unknown]
  - Glycosuria [Unknown]
  - Proteinuria [Unknown]
  - Fanconi syndrome [Unknown]
  - Metabolic acidosis [Unknown]
